FAERS Safety Report 17642920 (Version 2)
Quarter: 2020Q2

REPORT INFORMATION
  Report Type: Spontaneous
  Country: JP (occurrence: JP)
  Receive Date: 20200408
  Receipt Date: 20200418
  Transmission Date: 20200713
  Serious: Yes (Hospitalization, Other)
  Sender: FDA-Public Use
  Company Number: JP-CPL-001713

PATIENT
  Age: 80 Year
  Sex: Female
  Weight: 52.2 kg

DRUGS (7)
  1. DONEPEZIL. [Interacting]
     Active Substance: DONEPEZIL
     Indication: DEMENTIA ALZHEIMER^S TYPE
     Dosage: ON THE 16TH DAY
  2. AMANTADINE. [Interacting]
     Active Substance: AMANTADINE HYDROCHLORIDE
     Indication: ABULIA
  3. DONEPEZIL. [Suspect]
     Active Substance: DONEPEZIL
     Indication: DEMENTIA ALZHEIMER^S TYPE
     Dosage: ON THE 24TH DAY
  4. APIXABAN [Concomitant]
     Active Substance: APIXABAN
     Route: 045
  5. HEPARIN [Concomitant]
     Active Substance: HEPARIN SODIUM
     Route: 045
  6. EDARAVONE [Concomitant]
     Active Substance: EDARAVONE
     Route: 045
  7. AMANTADINE. [Interacting]
     Active Substance: AMANTADINE HYDROCHLORIDE
     Indication: CEREBRAL INFARCTION

REACTIONS (9)
  - Extrapyramidal disorder [Recovered/Resolved]
  - Drug level increased [Recovered/Resolved]
  - Dyskinesia [Recovered/Resolved]
  - Drug interaction [Unknown]
  - Tachycardia [Recovered/Resolved]
  - Myoclonus [Recovered/Resolved]
  - Pyrexia [Recovered/Resolved]
  - Paratonia [Recovered/Resolved]
  - Musculoskeletal stiffness [Recovered/Resolved]
